FAERS Safety Report 9834949 (Version 1)
Quarter: 2014Q1

REPORT INFORMATION
  Report Type: Spontaneous
  Country: US (occurrence: US)
  Receive Date: 20140122
  Receipt Date: 20140122
  Transmission Date: 20141002
  Serious: No
  Sender: FDA-Public Use
  Company Number: US-BAUSCH-BL-2013-004402

PATIENT
  Age: 78 Year
  Sex: Female
  Weight: 72.64 kg

DRUGS (2)
  1. ALAWAY (KETOTIFEN FUMARATE OPHTHALMIC SOLUTION) [Suspect]
     Indication: EYE PRURITUS
     Dosage: DROP; ONCE; RIGHT EYE
     Route: 047
     Dates: start: 20130723, end: 20130723
  2. ALAWAY (KETOTIFEN FUMARATE OPHTHALMIC SOLUTION) [Suspect]
     Dosage: DROP; ONCE; LEFT EYE
     Route: 047
     Dates: start: 20130723, end: 20130723

REACTIONS (2)
  - Eye irritation [Recovered/Resolved]
  - Eye pain [Recovered/Resolved]
